FAERS Safety Report 14204863 (Version 1)
Quarter: 2017Q4

REPORT INFORMATION
  Report Type: Spontaneous
  Country: US (occurrence: US)
  Receive Date: 20171120
  Receipt Date: 20171120
  Transmission Date: 20180321
  Serious: No
  Sender: FDA-Public Use
  Company Number: US-SA-2017SA017480

PATIENT
  Age: 32 Year
  Sex: Female

DRUGS (1)
  1. RENAGEL [Suspect]
     Active Substance: SEVELAMER HYDROCHLORIDE
     Indication: BLOOD PHOSPHORUS
     Route: 048

REACTIONS (1)
  - Dysgeusia [Unknown]
